FAERS Safety Report 4595947-X (Version None)
Quarter: 2005Q1

REPORT INFORMATION
  Report Type: 
  Country: None (occurrence: None)
  Receive Date: 20050302
  Receipt Date: 20050218
  Transmission Date: 20050727
  Serious: Yes (Other)
  Sender: FDA-Public Use
  Company Number: DE-JNJFOC-20050204773

PATIENT
  Age: 60 Year
  Sex: Female

DRUGS (11)
  1. TOPAMAX [Suspect]
     Dates: start: 20010129, end: 20010208
  2. TOPAMAX [Suspect]
     Indication: DRUG USE FOR UNKNOWN INDICATION
     Dates: start: 20010129, end: 20010208
  3. ERGENYL [Suspect]
     Indication: DRUG USE FOR UNKNOWN INDICATION
     Route: 065
  4. ZYPREXA [Suspect]
     Indication: DRUG USE FOR UNKNOWN INDICATION
     Route: 065
  5. JATROSOM N [Suspect]
     Indication: DRUG USE FOR UNKNOWN INDICATION
     Route: 065
  6. HYPNOREX [Suspect]
     Indication: DRUG USE FOR UNKNOWN INDICATION
     Route: 065
  7. TAVOR [Suspect]
     Route: 065
  8. TAVOR [Suspect]
     Indication: DRUG USE FOR UNKNOWN INDICATION
     Route: 065
  9. MPA [Suspect]
     Indication: DRUG USE FOR UNKNOWN INDICATION
     Route: 065
  10. MAGNESIUM [Suspect]
     Indication: DRUG USE FOR UNKNOWN INDICATION
     Route: 065
  11. ESTRADERM [Suspect]
     Indication: DRUG USE FOR UNKNOWN INDICATION
     Route: 065

REACTIONS (5)
  - CEREBELLAR SYNDROME [None]
  - COORDINATION ABNORMAL [None]
  - DIZZINESS [None]
  - FALL [None]
  - GAIT DISTURBANCE [None]
